FAERS Safety Report 4382921-1 (Version None)
Quarter: 2004Q2

REPORT INFORMATION
  Report Type: 
  Country: None (occurrence: None)
  Receive Date: 20040617
  Receipt Date: 20040607
  Transmission Date: 20050107
  Serious: Yes (Other)
  Sender: FDA-Public Use
  Company Number: 2004037859

PATIENT
  Age: 73 Year
  Sex: Male
  Weight: 108.8633 kg

DRUGS (2)
  1. VIAGRA [Suspect]
     Indication: ILL-DEFINED DISORDER
     Dosage: 100 MG (100 MG)
  2. CERIVASTATIN SODIUM (CERIVASTATIN SODIUM) [Suspect]
     Indication: ILL-DEFINED DISORDER

REACTIONS (2)
  - DRUG EFFECT DECREASED [None]
  - MYOCARDIAL INFARCTION [None]
